FAERS Safety Report 5793460-5 (Version None)
Quarter: 2008Q2

REPORT INFORMATION
  Report Type: 
  Country: None (occurrence: None)
  Receive Date: 20080627
  Receipt Date: 20080623
  Transmission Date: 20081010
  Serious: Yes (Hospitalization)
  Sender: FDA-Public Use
  Company Number: DE-MERCK-0806DEU00068

PATIENT
  Age: 85 Year
  Sex: Female

DRUGS (4)
  1. COZAAR [Suspect]
     Indication: HYPERTENSION
     Route: 048
     Dates: start: 20080530
  2. COZAAR [Suspect]
     Route: 048
     Dates: start: 20000101, end: 20080529
  3. HAWTHORN [Concomitant]
     Indication: CARDIAC DISORDER
     Route: 065
  4. MAGNESIUM (UNSPECIFIED) [Concomitant]
     Route: 065

REACTIONS (12)
  - AGITATION [None]
  - ARRHYTHMIA [None]
  - ASTHENIA [None]
  - COUGH [None]
  - DIZZINESS [None]
  - EXTRASYSTOLES [None]
  - MENTAL DISORDER DUE TO A GENERAL MEDICAL CONDITION [None]
  - MUSCLE DISORDER [None]
  - NORMAL PRESSURE HYDROCEPHALUS [None]
  - PALPITATIONS [None]
  - POLYNEUROPATHY [None]
  - SOMNOLENCE [None]
